FAERS Safety Report 5335146-7 (Version None)
Quarter: 2007Q2

REPORT INFORMATION
  Report Type: 
  Country: None (occurrence: None)
  Receive Date: 20070525
  Receipt Date: 20070313
  Transmission Date: 20071010
  Serious: Yes (Life-Threatening, Other)
  Sender: FDA-Public Use
  Company Number: JP-MERCK-0703USA00351

PATIENT
  Age: 80 Year
  Sex: Male

DRUGS (9)
  1. STROMECTOL [Suspect]
     Indication: ACARODERMATITIS
     Route: 048
     Dates: start: 20070126, end: 20070126
  2. PREDONINE [Concomitant]
     Indication: LEUKOCYTOCLASTIC VASCULITIS
     Route: 048
     Dates: start: 20061207
  3. ARTIST [Concomitant]
     Indication: HYPERTENSION
     Route: 048
     Dates: start: 20061215, end: 20070131
  4. DIOVAN [Concomitant]
     Indication: HYPERTENSION
     Route: 048
     Dates: start: 20061212
  5. TAKEPRON [Concomitant]
     Indication: GASTRIC ULCER
     Route: 048
     Dates: start: 20061227
  6. LANIRAPID [Concomitant]
     Indication: ARRHYTHMIA
     Route: 048
     Dates: start: 20061227, end: 20070130
  7. ASPIRIN [Concomitant]
     Indication: VENOUS THROMBOSIS LIMB
     Route: 048
     Dates: start: 20061227
  8. RISPERDAL [Concomitant]
     Indication: DELIRIUM
     Route: 048
     Dates: start: 20070125, end: 20070130
  9. ALLELOCK [Concomitant]
     Indication: PRURITUS
     Route: 048
     Dates: start: 20070125, end: 20070130

REACTIONS (6)
  - ASTHENIA [None]
  - BLOOD PRESSURE DECREASED [None]
  - BRADYCARDIA [None]
  - DEPRESSED LEVEL OF CONSCIOUSNESS [None]
  - DIARRHOEA [None]
  - SOMNOLENCE [None]
